FAERS Safety Report 6635519-6 (Version None)
Quarter: 2010Q1

REPORT INFORMATION
  Report Type: 
  Country: None (occurrence: None)
  Receive Date: 20100315
  Receipt Date: 20100216
  Transmission Date: 20100710
  Serious: Yes (Other)
  Sender: FDA-Public Use
  Company Number: US-ABBOTT-10P-163-0624278-00

PATIENT
  Sex: Female
  Weight: 53.572 kg

DRUGS (5)
  1. DEPAKOTE [Suspect]
     Indication: CONVULSION
     Dosage: LOW DOSE IN THE BEGINNING
     Dates: start: 19940101
  2. DEPAKOTE [Suspect]
     Dosage: INCREASE IN DOSE
     Dates: start: 20080101
  3. DIVALPROEX SODIUM [Suspect]
     Indication: CONVULSION
  4. SOY POWDER [Concomitant]
     Indication: NUTRITIONAL SUPPORT
  5. VITAMIN TAB [Concomitant]
     Indication: VITAMIN SUPPLEMENTATION
     Route: 065

REACTIONS (7)
  - ANGER [None]
  - CONVULSION [None]
  - FEELING ABNORMAL [None]
  - HYPERSOMNIA [None]
  - INSOMNIA [None]
  - POLLAKIURIA [None]
  - WEIGHT DECREASED [None]
